FAERS Safety Report 5406755-1 (Version None)
Quarter: 2007Q3

REPORT INFORMATION
  Report Type: 
  Country: None (occurrence: None)
  Receive Date: 20070807
  Receipt Date: 20070803
  Transmission Date: 20080115
  Serious: Yes (Death)
  Sender: FDA-Public Use
  Company Number: PHBS2007PH11935

PATIENT
  Age: 32 Year
  Sex: Female

DRUGS (3)
  1. LEPONEX [Suspect]
     Indication: SCHIZOPHRENIA
     Dosage: 25 MG, UNK
     Route: 048
  2. LEPONEX [Suspect]
     Dosage: 100 MG, UNK
  3. DIET PILLS [Concomitant]

REACTIONS (7)
  - CARDIAC ARREST [None]
  - COUGH [None]
  - DYSPNOEA [None]
  - HALLUCINATION [None]
  - NASOPHARYNGITIS [None]
  - SOMNOLENCE [None]
  - WEIGHT INCREASED [None]
